FAERS Safety Report 17162463 (Version 4)
Quarter: 2020Q2

REPORT INFORMATION
  Report Type: Other
  Country: PL (occurrence: PL)
  Receive Date: 20191217
  Receipt Date: 20200422
  Transmission Date: 20200713
  Serious: Yes (Hospitalization, Other)
  Sender: FDA-Public Use
  Company Number: PL-MACLEODS PHARMACEUTICALS US LTD-MAC2019024278

PATIENT

DRUGS (14)
  1. VALSARTAN. [Suspect]
     Active Substance: VALSARTAN
     Indication: PULMONARY HYPERTENSION
     Dosage: 80 MILLIGRAM, QD
     Route: 065
  2. SPIRONOLACTONE. [Suspect]
     Active Substance: SPIRONOLACTONE
     Indication: PULMONARY HYPERTENSION
     Dosage: 50 MILLIGRAM, QD
     Route: 065
  3. ACENOCOUMAROL [Suspect]
     Active Substance: ACENOCOUMAROL
     Dosage: UNK
     Route: 065
  4. METOPROLOL. [Suspect]
     Active Substance: METOPROLOL
     Indication: PULMONARY HYPERTENSION
     Dosage: 50 MILLIGRAM, QD
     Route: 065
  5. TORASEMIDE [Suspect]
     Active Substance: TORSEMIDE
     Indication: PULMONARY HYPERTENSION
     Dosage: 10 MILLIGRAM, QD
     Route: 065
     Dates: start: 201705
  6. RIOCIGUAT. [Suspect]
     Active Substance: RIOCIGUAT
     Dosage: 2.5 MILLIGRAM, TID (DOSE WAS GRADUALLY INCREASED TO THE TARGET DOSE OF 2.5 MG TID)
     Route: 065
     Dates: start: 201807
  7. ASPIRIN. [Suspect]
     Active Substance: ASPIRIN
     Indication: PRODUCT USED FOR UNKNOWN INDICATION
     Dosage: UNK
     Route: 065
     Dates: start: 201801
  8. ACENOCOUMAROL [Suspect]
     Active Substance: ACENOCOUMAROL
     Indication: PULMONARY HYPERTENSION
     Dosage: UNK
     Route: 065
  9. SPIRONOLACTONE. [Suspect]
     Active Substance: SPIRONOLACTONE
     Indication: DIURETIC THERAPY
     Dosage: 25 MILLIGRAM, QD
     Route: 065
  10. TORASEMIDE [Suspect]
     Active Substance: TORSEMIDE
     Indication: DIURETIC THERAPY
     Dosage: 20 MILLIGRAM, QD
     Route: 065
     Dates: start: 201807
  11. SILDENAFIL. [Suspect]
     Active Substance: SILDENAFIL
     Indication: PULMONARY HYPERTENSION
     Dosage: 25 MILLIGRAM, TID
     Route: 065
     Dates: start: 201705, end: 201807
  12. SILDENAFIL. [Suspect]
     Active Substance: SILDENAFIL
     Dosage: 75 MILLIGRAM, QD
     Route: 065
  13. RIOCIGUAT. [Suspect]
     Active Substance: RIOCIGUAT
     Indication: PULMONARY HYPERTENSION
     Dosage: UNK
     Route: 065
     Dates: start: 201807, end: 201807
  14. ILOPROST. [Concomitant]
     Active Substance: ILOPROST
     Indication: PRODUCT USED FOR UNKNOWN INDICATION
     Dosage: UNK
     Route: 065

REACTIONS (9)
  - Vascular resistance pulmonary decreased [Unknown]
  - Condition aggravated [Recovered/Resolved]
  - Dyspnoea exertional [Recovering/Resolving]
  - Bradycardia [Unknown]
  - Off label use [Unknown]
  - Hypotension [Unknown]
  - Therapeutic product effect incomplete [Recovered/Resolved]
  - Pulmonary hypertension [Recovering/Resolving]
  - Left-to-right cardiac shunt [Recovered/Resolved]

NARRATIVE: CASE EVENT DATE: 2017
